FAERS Safety Report 6839882-2 (Version None)
Quarter: 2010Q3

REPORT INFORMATION
  Report Type: 
  Country: None (occurrence: None)
  Receive Date: 20100708
  Receipt Date: 20100618
  Transmission Date: 20110219
  Serious: Yes (Hospitalization)
  Sender: FDA-Public Use
  Company Number: CV20100313

PATIENT
  Age: 40 Year
  Sex: Female

DRUGS (13)
  1. PROPOFOL [Suspect]
     Indication: INDUCTION OF ANAESTHESIA
     Dosage: INTRAVENOUS
     Route: 042
     Dates: start: 20100426, end: 20100426
  2. ATRACURIUM (ATRACURIUM) (ATRACURIUM) [Concomitant]
  3. ULTIVA (REMIFENTANIL HYDROCHLORIDE) (REMIFENTANIL HYDROCHLORIDE) [Concomitant]
  4. NORMACOL LAVENT ADULTS (BACTRIM) (BACTRIM) [Concomitant]
  5. BETADINE (POVIDONE-IODINE) (POVIDONE-IODINE) [Concomitant]
  6. BETADINE DERMIQUE (POVIDONE-IODINE) (POVIDONE-IODINE) [Concomitant]
  7. AUGMENTIN (AUGMENTIN) (AUGMENTIN) [Concomitant]
  8. NEURONTINE (GABAPENTIN) (GABAPENTIN) [Concomitant]
  9. KETAMINE PANPHARMA (KETAMINE HYDROCHLORIDE) (KETAMINE HYDROCHLORIDE) [Concomitant]
  10. ACUPAN (NEFOPAM HYDROCHLORIDE) (NEFOPAM HYDROCHLORIDE) [Concomitant]
  11. DEXAMETHASONE MERCK (DEXAMETHASONE SODIUM PHOSPHATE) (DEXAMETHASONE SO [Concomitant]
  12. NAROPEINE (ROPIVACAINE HYDROCHLORIDE) (ROPIVACAINE HYDROCHLORIDE) [Concomitant]
  13. SPASFON (SPASFON) (SPASFON) [Concomitant]

REACTIONS (5)
  - HAEMATURIA [None]
  - HAEMOLYSIS [None]
  - LYMPHOPENIA [None]
  - OLIGURIA [None]
  - RENAL FAILURE ACUTE [None]
